FAERS Safety Report 25046010 (Version 2)
Quarter: 2025Q1

REPORT INFORMATION
  Report Type: Spontaneous
  Country: AU (occurrence: AU)
  Receive Date: 20250306
  Receipt Date: 20250311
  Transmission Date: 20250408
  Serious: Yes (Hospitalization)
  Sender: BRAEBURN PHARMACEUTICALS
  Company Number: AU-BRAEBURN-AU-BRA-25-000156

PATIENT

DRUGS (1)
  1. BUPRENORPHINE [Suspect]
     Active Substance: BUPRENORPHINE
     Indication: Product used for unknown indication
     Route: 065
     Dates: start: 202502

REACTIONS (3)
  - Swelling face [Recovering/Resolving]
  - Hyperhidrosis [Recovering/Resolving]
  - Vomiting [Recovering/Resolving]

NARRATIVE: CASE EVENT DATE: 20250201
